FAERS Safety Report 19830430 (Version 1)
Quarter: 2021Q3

REPORT INFORMATION
  Report Type: Report from Study
  Country: GB (occurrence: GB)
  Receive Date: 20210915
  Receipt Date: 20210915
  Transmission Date: 20211014
  Serious: Yes (Other)
  Sender: FDA-Public Use
  Company Number: GB-SUN PHARMACEUTICAL INDUSTRIES LTD-2021R1-311270

PATIENT

DRUGS (1)
  1. INDOMETHACIN. [Suspect]
     Active Substance: INDOMETHACIN
     Indication: PREMATURE LABOUR
     Dosage: 25 MILLIGRAM, BID
     Route: 064

REACTIONS (2)
  - Foetal exposure during pregnancy [Unknown]
  - Tricuspid valve incompetence [Unknown]
